FAERS Safety Report 5939533-5 (Version None)
Quarter: 2008Q4

REPORT INFORMATION
  Report Type: 
  Country: None (occurrence: None)
  Receive Date: 20081030
  Receipt Date: 20081023
  Transmission Date: 20090506
  Serious: Yes (Disabling)
  Sender: FDA-Public Use
  Company Number: APP200800439

PATIENT
  Age: 48 Year
  Sex: Male

DRUGS (6)
  1. SENSORCAINE [Suspect]
     Indication: MUSCULOSKELETAL PAIN
     Dosage: CONTINUOUS VIA PAIN PUMP
     Dates: start: 20060511
  2. SENSORCAINE [Suspect]
     Indication: MUSCULOSKELETAL PAIN
     Dosage: CONTINUOUS VIA PAIN PUMP
     Dates: start: 20060511
  3. ANCEF [Concomitant]
  4. ACIPHEX (RAVEPRAZOLE SODIUM) [Concomitant]
  5. HYDROCODONE (HYDROCODONE) [Concomitant]
  6. BREG PAIN PUMP [Suspect]
     Indication: MUSCULOSKELETAL PAIN
     Dates: start: 20060511

REACTIONS (11)
  - BODY TEMPERATURE INCREASED [None]
  - CHONDROLYSIS [None]
  - COMPRESSION FRACTURE [None]
  - JOINT RANGE OF MOTION DECREASED [None]
  - MEDICAL DEVICE COMPLICATION [None]
  - MUSCULOSKELETAL DISCOMFORT [None]
  - MUSCULOSKELETAL PAIN [None]
  - MUSCULOSKELETAL STIFFNESS [None]
  - OSTEONECROSIS [None]
  - STAPHYLOCOCCAL INFECTION [None]
  - SYNOVITIS [None]
